FAERS Safety Report 7035543-8 (Version None)
Quarter: 2010Q4

REPORT INFORMATION
  Report Type: 
  Country: None (occurrence: None)
  Receive Date: 20101008
  Receipt Date: 20101005
  Transmission Date: 20110411
  Serious: Yes (Death, Other)
  Sender: FDA-Public Use
  Company Number: PHHY2010BE63669

PATIENT
  Age: 78 Year
  Sex: Female

DRUGS (2)
  1. ACLASTA [Suspect]
     Indication: OSTEOPOROSIS
     Dosage: 5 MG
     Dates: start: 20100607
  2. ACLASTA [Suspect]
     Indication: HYPERCALCAEMIA

REACTIONS (6)
  - ARRHYTHMIA [None]
  - BLOOD CREATINE INCREASED [None]
  - DEATH [None]
  - MOVEMENT DISORDER [None]
  - NERVOUS SYSTEM DISORDER [None]
  - RENAL FAILURE ACUTE [None]
